FAERS Safety Report 9913551 (Version 1)
Quarter: 2014Q1

REPORT INFORMATION
  Report Type: Spontaneous
  Country: FR (occurrence: FR)
  Receive Date: 20140220
  Receipt Date: 20140220
  Transmission Date: 20141002
  Serious: Yes (Other)
  Sender: FDA-Public Use
  Company Number: FR-NOVOPROD-400394

PATIENT
  Age: 88 Year
  Sex: Female

DRUGS (8)
  1. NOVONORM [Suspect]
     Indication: PRODUCT USED FOR UNKNOWN INDICATION
     Dosage: 1 MG, QD
     Route: 048
  2. LOXEN /00639802/ [Suspect]
     Indication: PRODUCT USED FOR UNKNOWN INDICATION
     Dosage: 50 MG, QD
     Route: 048
     Dates: start: 20140125
  3. HYZAAR [Suspect]
     Indication: PRODUCT USED FOR UNKNOWN INDICATION
     Dosage: 50MG/12.5MG, QD
     Route: 048
     Dates: start: 20140125
  4. URAPIDIL [Suspect]
     Indication: PRODUCT USED FOR UNKNOWN INDICATION
     Dosage: 60 MG, QD
     Route: 048
     Dates: start: 20140125
  5. TARDYFERON [Suspect]
     Indication: PRODUCT USED FOR UNKNOWN INDICATION
     Dosage: 80 MG, QD
     Route: 048
     Dates: start: 20140125
  6. TAHOR [Concomitant]
     Dosage: UNK
     Route: 065
  7. LOVENOX [Concomitant]
     Dosage: UNK
     Route: 065
  8. RIVOTRIL [Concomitant]
     Dosage: UNK
     Route: 065

REACTIONS (3)
  - Wrong patient received medication [Recovered/Resolved]
  - Hypotension [Recovered/Resolved]
  - Medication error [Recovered/Resolved]
